FAERS Safety Report 5146569-3 (Version None)
Quarter: 2006Q4

REPORT INFORMATION
  Report Type: 
  Country: None (occurrence: None)
  Receive Date: 20060911
  Receipt Date: 20060601
  Transmission Date: 20070319
  Serious: No
  Sender: FDA-Public Use
  Company Number: IND-AE-06-SAN-022

PATIENT
  Age: 76 Year
  Sex: Female
  Weight: 74.8435 kg

DRUGS (2)
  1. SANCTURA [Suspect]
     Indication: POLLAKIURIA
     Dosage: 20 MG -QPM-ORAL
     Route: 048
  2. SYNTHROID [Concomitant]

REACTIONS (1)
  - DYSPNOEA [None]
